FAERS Safety Report 7211230-8 (Version None)
Quarter: 2011Q1

REPORT INFORMATION
  Report Type: 
  Country: None (occurrence: None)
  Receive Date: 20110105
  Receipt Date: 20101215
  Transmission Date: 20110831
  Serious: No
  Sender: FDA-Public Use
  Company Number: US-B.I. PHARMACEUTICALS,INC./RIDGEFIELD-2010-BP-13713BP

PATIENT
  Sex: Female

DRUGS (1)
  1. ZANTAC 150 [Suspect]

REACTIONS (1)
  - SCRATCH [None]
